FAERS Safety Report 17983414 (Version 1)
Quarter: 2020Q3

REPORT INFORMATION
  Report Type: Spontaneous
  Country: US (occurrence: US)
  Receive Date: 20200703
  Receipt Date: 20200703
  Transmission Date: 20201103
  Serious: Yes (Hospitalization)
  Sender: FDA-Public Use
  Company Number: None

PATIENT
  Age: 68 Year
  Sex: Male
  Weight: 65.8 kg

DRUGS (2)
  1. LEUPROLIDE ACETATE. [Suspect]
     Active Substance: LEUPROLIDE ACETATE
     Dates: end: 20200428
  2. CASODEX [Suspect]
     Active Substance: BICALUTAMIDE
     Dates: end: 20181126

REACTIONS (5)
  - Hyponatraemia [None]
  - Fall [None]
  - Hypomagnesaemia [None]
  - Confusional state [None]
  - Toxic encephalopathy [None]

NARRATIVE: CASE EVENT DATE: 20200615
